FAERS Safety Report 14010223 (Version 1)
Quarter: 2017Q3

REPORT INFORMATION
  Report Type: Spontaneous
  Country: AU (occurrence: AU)
  Receive Date: 20170926
  Receipt Date: 20170926
  Transmission Date: 20171128
  Serious: Yes (Other)
  Sender: FDA-Public Use
  Company Number: AU-009507513-1709AUS010921

PATIENT
  Age: 71 Year
  Sex: Male

DRUGS (1)
  1. BCG LIVE [Suspect]
     Active Substance: BACILLUS CALMETTE-GUERIN SUBSTRAIN TICE LIVE ANTIGEN
     Indication: BLADDER TRANSITIONAL CELL CARCINOMA
     Dosage: 3 YEAR COURSE OF INTERMITTENT (18 TIMES IN TOTAL)
     Route: 043

REACTIONS (2)
  - Acute kidney injury [Recovered/Resolved]
  - Renal tuberculosis [Recovered/Resolved]
